FAERS Safety Report 14264124 (Version 5)
Quarter: 2023Q2

REPORT INFORMATION
  Report Type: Report from Study
  Country: BR (occurrence: BR)
  Receive Date: 20171208
  Receipt Date: 20230524
  Transmission Date: 20230722
  Serious: Yes (Other)
  Sender: FDA-Public Use
  Company Number: BR-BAYER-2017-194394

PATIENT
  Age: 72 Year
  Sex: Female

DRUGS (13)
  1. NEXAVAR [Suspect]
     Active Substance: SORAFENIB
     Indication: Follicular thyroid cancer
     Dosage: 400 MG, BID
     Route: 048
     Dates: start: 20170704, end: 201711
  2. NEXAVAR [Suspect]
     Active Substance: SORAFENIB
     Indication: Metastases to lung
     Dosage: 200 MG, BID
     Route: 048
     Dates: start: 20180209
  3. PURAN [Concomitant]
     Active Substance: LEVOTHYROXINE SODIUM
     Indication: Thyroid hormone replacement therapy
     Dosage: 125 MCG QD (30 MIN BEFORE BREAKFAST)
     Dates: start: 201012
  4. LOSARTAN [Concomitant]
     Active Substance: LOSARTAN
     Indication: Hypertension
     Dosage: 1 DF, BID
     Dates: start: 20101109
  5. DIURIX [FUROSEMIDE] [Concomitant]
     Indication: Hypertension
     Dosage: 25 MG, QD
     Dates: start: 201012
  6. HYDROCHLOROTHIAZIDE [Concomitant]
     Active Substance: HYDROCHLOROTHIAZIDE
     Indication: Hypertension
     Dosage: 25 MG, QD
     Dates: start: 20101109
  7. ONDANSETRON HYDROCHLORIDE [Concomitant]
     Active Substance: ONDANSETRON HYDROCHLORIDE
     Indication: Nausea
     Dosage: 2 DF, QD
  8. LEVAMLODIPINE BESYLATE [Concomitant]
     Active Substance: LEVAMLODIPINE BESYLATE
     Dosage: UNK
     Dates: start: 201710
  9. SIMVASTATIN [Concomitant]
     Active Substance: SIMVASTATIN
     Indication: Blood cholesterol increased
     Dosage: UNK
  10. SIMVASTATIN [Concomitant]
     Active Substance: SIMVASTATIN
     Indication: Blood triglycerides increased
  11. FISIOGEN FERRO [Concomitant]
  12. COPPERTONE [BENZOPHENONE,PADIMATE O] [Concomitant]
  13. BEPANTOL [Concomitant]

REACTIONS (22)
  - Immunodeficiency [Not Recovered/Not Resolved]
  - Blood pressure increased [Recovered/Resolved]
  - Dry skin [Recovered/Resolved]
  - Hyperkeratosis [Recovered/Resolved]
  - Gait disturbance [None]
  - Nausea [Recovered/Resolved]
  - Alopecia [Recovered/Resolved]
  - Skin hypertrophy [Recovered/Resolved]
  - Skin wrinkling [Recovered/Resolved]
  - Pruritus [Recovered/Resolved]
  - Decreased appetite [None]
  - Nasopharyngitis [Recovering/Resolving]
  - Palmar-plantar erythrodysaesthesia syndrome [Recovered/Resolved]
  - Dry skin [Recovered/Resolved]
  - Vomiting [None]
  - Skin disorder [Recovered/Resolved]
  - Diarrhoea [Recovered/Resolved]
  - Constipation [Recovered/Resolved]
  - Dyspepsia [None]
  - Malaise [None]
  - Pharyngeal mass [None]
  - Pulmonary mass [None]

NARRATIVE: CASE EVENT DATE: 20170701
